FAERS Safety Report 14425326 (Version 1)
Quarter: 2018Q1

REPORT INFORMATION
  Report Type: Spontaneous
  Country: US (occurrence: US)
  Receive Date: 20180123
  Receipt Date: 20180123
  Transmission Date: 20180509
  Serious: No
  Sender: FDA-Public Use
  Company Number: US-HERITAGE PHARMACEUTICALS-2017HTG00064

PATIENT
  Sex: Female

DRUGS (2)
  1. METHIMAZOLE. [Suspect]
     Active Substance: METHIMAZOLE
  2. METHIMAZOLE. [Suspect]
     Active Substance: METHIMAZOLE

REACTIONS (2)
  - Medication error [Unknown]
  - Malaise [Unknown]
